FAERS Safety Report 11473895 (Version 1)
Quarter: 2015Q3

REPORT INFORMATION
  Report Type: Spontaneous
  Country: US (occurrence: US)
  Receive Date: 20150908
  Receipt Date: 20150908
  Transmission Date: 20151125
  Serious: No
  Sender: FDA-Public Use
  Company Number: US-JAZZ-2013-US-001674

PATIENT
  Age: 35 Year
  Sex: Female
  Weight: 57.14 kg

DRUGS (19)
  1. XYREM [Suspect]
     Active Substance: SODIUM OXYBATE
     Indication: SOMNOLENCE
     Dosage: 3 G, BID
     Route: 048
     Dates: start: 201304, end: 2013
  2. COQ10 [Concomitant]
     Active Substance: UBIDECARENONE
     Indication: CARDIAC DISORDER
     Dosage: UNK
     Route: 048
  3. PROVIGIL [Concomitant]
     Active Substance: MODAFINIL
     Indication: SOMNOLENCE
     Dosage: UK
     Route: 048
  4. SINGULAIR [Concomitant]
     Active Substance: MONTELUKAST SODIUM
     Indication: ASTHMA
     Dosage: UNK
     Route: 048
  5. NEXIUM [Concomitant]
     Active Substance: ESOMEPRAZOLE MAGNESIUM
     Indication: GASTROOESOPHAGEAL REFLUX DISEASE
     Dosage: UNK
     Route: 048
  6. XYREM [Suspect]
     Active Substance: SODIUM OXYBATE
     Dosage: 4.5 G 1ST DOSE/1.5 G 2ND DOSE
     Route: 048
     Dates: start: 2013, end: 2013
  7. PROVIGIL [Concomitant]
     Active Substance: MODAFINIL
     Indication: NARCOLEPSY
  8. XYREM [Suspect]
     Active Substance: SODIUM OXYBATE
     Dosage: 3 G, BID
     Route: 048
     Dates: start: 2013
  9. VYTORIN [Concomitant]
     Active Substance: EZETIMIBE\SIMVASTATIN
     Indication: HYPERCHOLESTEROLAEMIA
     Dosage: 1 UNK, QD
     Route: 048
  10. PROVENTIL [Concomitant]
     Active Substance: ALBUTEROL
     Indication: DYSPNOEA
     Dosage: UNK, PRN
     Route: 055
  11. DULERA [Concomitant]
     Active Substance: FORMOTEROL FUMARATE DIHYDRATE\MOMETASONE FUROATE
     Indication: ASTHMA
     Dosage: UNK
     Route: 055
  12. MULTIVITAMINS [Concomitant]
     Active Substance: VITAMINS
     Indication: SUPPLEMENTATION THERAPY
     Dosage: UNK
     Route: 048
  13. XYREM [Suspect]
     Active Substance: SODIUM OXYBATE
     Indication: NARCOLEPSY
     Dosage: 1.5 G, BID
     Route: 048
     Dates: start: 20130329, end: 2013
  14. ASTEPRO [Concomitant]
     Active Substance: AZELASTINE HYDROCHLORIDE
     Indication: CHRONIC SINUSITIS
     Dosage: UNK
     Route: 045
  15. NASONEX [Concomitant]
     Active Substance: MOMETASONE FUROATE
     Indication: CHRONIC SINUSITIS
     Dosage: UNK
     Route: 048
  16. VITAMIN D [Concomitant]
     Active Substance: CHOLECALCIFEROL
     Indication: VITAMIN D DECREASED
     Dosage: 10000 IU, UNK
     Route: 048
  17. CLARINEX [Concomitant]
     Active Substance: DESLORATADINE
     Indication: RHINITIS ALLERGIC
     Dosage: UNK
     Route: 048
  18. ZOVIA [Concomitant]
     Active Substance: ETHINYL ESTRADIOL\ETHYNODIOL DIACETATE
     Indication: ENDOMETRIOSIS
     Dosage: UNK
     Route: 048
     Dates: start: 20131029
  19. AYGESTIN [Suspect]
     Active Substance: NORETHINDRONE ACETATE
     Indication: ENDOMETRIOSIS
     Dosage: UNK
     Route: 048
     Dates: start: 201303, end: 20131028

REACTIONS (19)
  - Crystal urine [Not Recovered/Not Resolved]
  - Urine abnormality [Not Recovered/Not Resolved]
  - Irritability [Recovered/Resolved]
  - Sinus headache [Not Recovered/Not Resolved]
  - Hypertension [Recovering/Resolving]
  - Urinary tract infection [Recovered/Resolved]
  - Aphasia [Not Recovered/Not Resolved]
  - Tachycardia [Recovering/Resolving]
  - Hyperhidrosis [Recovering/Resolving]
  - Chest discomfort [Recovered/Resolved]
  - High density lipoprotein decreased [Not Recovered/Not Resolved]
  - Weight increased [Not Recovered/Not Resolved]
  - Insomnia [Not Recovered/Not Resolved]
  - Chromaturia [Not Recovered/Not Resolved]
  - Constipation [Not Recovered/Not Resolved]
  - Chills [Not Recovered/Not Resolved]
  - Back pain [Recovering/Resolving]
  - Chest pain [Recovering/Resolving]
  - Fatigue [Recovered/Resolved]

NARRATIVE: CASE EVENT DATE: 2013
